FAERS Safety Report 12728815 (Version 1)
Quarter: 2016Q3

REPORT INFORMATION
  Report Type: Spontaneous
  Country: US (occurrence: US)
  Receive Date: 20160909
  Receipt Date: 20160909
  Transmission Date: 20161109
  Serious: Yes (Hospitalization)
  Sender: FDA-Public Use
  Company Number: US-ACTELION-A-NJ2016-141739

PATIENT
  Age: 35 Year
  Sex: Female

DRUGS (3)
  1. LETAIRIS [Concomitant]
     Active Substance: AMBRISENTAN
  2. VELETRI [Suspect]
     Active Substance: EPOPROSTENOL
     Indication: PULMONARY ARTERIAL HYPERTENSION
     Dosage: 67 NG/KG, PER MIN
     Route: 042
     Dates: start: 20160425
  3. WARFARIN [Concomitant]
     Active Substance: WARFARIN

REACTIONS (1)
  - Catheter site infection [Unknown]
